FAERS Safety Report 7810823 (Version 5)
Quarter: 2013Q1

REPORT INFORMATION
  Report Type: Spontaneous
  Country: FR (occurrence: None)
  Receive Date: 20110128
  Receipt Date: 20130311
  Transmission Date: 20140127
  Serious: Yes (Death, Life-Threatening)
  Sender: FDA-Public Use
  Company Number: 2011-0181

PATIENT
  Age: 11 Year
  Sex: Female
  Weight: 29 kg

DRUGS (3)
  1. INCRELEX [Suspect]
     Indication: GROWTH RETARDATION
     Dosage: 0.24 MG/KG (0.12 MG/KG, 2 IN 1 D), SUBCUTANEOUS
     Route: 058
     Dates: start: 20101130, end: 20110116
  2. INCRELEX [Suspect]
     Indication: OFF LABEL USE
     Dosage: 0.24 MG/KG (0.12 MG/KG, 2 IN 1 D), SUBCUTANEOUS
     Route: 058
     Dates: start: 20101130, end: 20110116
  3. THYROID HORMONE (THYROID HORMONES) [Concomitant]

REACTIONS (9)
  - Vaginal abscess [None]
  - Leukopenia [None]
  - Thrombocytopenia [None]
  - Anaemia [None]
  - Myelodysplastic syndrome [None]
  - Karyotype analysis abnormal [None]
  - Enterobacter sepsis [None]
  - Device related infection [None]
  - Cellulitis [None]
